FAERS Safety Report 10037157 (Version 2)
Quarter: 2015Q4

REPORT INFORMATION
  Report Type: Report from Study
  Country: ES (occurrence: ES)
  Receive Date: 20140326
  Receipt Date: 20151229
  Transmission Date: 20160304
  Serious: Yes (Hospitalization)
  Sender: FDA-Public Use
  Company Number: ES-ROCHE-1367441

PATIENT
  Age: 79 Year
  Sex: Male
  Weight: 66 kg

DRUGS (5)
  1. 5-FLUOROURACIL [Suspect]
     Active Substance: FLUOROURACIL
     Indication: BREAST CANCER
     Dosage: CONTINUOUS INFUSION?16-JAN-2013 3350 MG, 02-JAN-2014 3370 MG, 02-JAN-2014 554 MG, 16-JAN-2013 554 MG
     Route: 042
  2. OXALIPLATIN. [Suspect]
     Active Substance: OXALIPLATIN
     Indication: BREAST CANCER
     Dosage: 02-JAN-2014 118 MG, 16-JAN-2013 118 MG, 24-FEB-2013 73.5 MG, 07-FEB-2014 73.5 MG 09-APR-2014 73.5 MG
     Route: 042
     Dates: start: 20130116
  3. LEUCOVORIN. [Suspect]
     Active Substance: LEUCOVORIN
     Indication: BREAST CANCER
     Dosage: 16-JAN-2013 684 MG, 02-JAN-2014 692 MG, 07-FEB-2014 684 MG, 4-FEB-2013 684 MG, 24-FEB-2013 684 MG.?0
     Route: 042
     Dates: start: 20130116
  4. BEVACIZUMAB [Suspect]
     Active Substance: BEVACIZUMAB
     Indication: BREAST CANCER
     Dosage: 02-JAN-2014 340 MG, 16-JAN-2013 340 MG, 09-APR-2014 330 MG?07-FEB-2014 330 MG, 24-FEB-2014 330 MG,
     Route: 042
     Dates: start: 20130116
  5. 5-FLUOROURACIL [Suspect]
     Active Substance: FLUOROURACIL
     Route: 040

REACTIONS (2)
  - Disorientation [Not Recovered/Not Resolved]
  - Abdominal pain [Not Recovered/Not Resolved]

NARRATIVE: CASE EVENT DATE: 20140305
